FAERS Safety Report 16656355 (Version 1)
Quarter: 2019Q3

REPORT INFORMATION
  Report Type: Spontaneous
  Country: US (occurrence: US)
  Receive Date: 20190801
  Receipt Date: 20190801
  Transmission Date: 20191004
  Serious: No
  Sender: FDA-Public Use
  Company Number: US-PACIRA-201800169

PATIENT
  Weight: 16 kg

DRUGS (1)
  1. EXPAREL [Suspect]
     Active Substance: BUPIVACAINE
     Indication: SURGERY
     Dosage: 266 MG, SINGLE, FREQUENCY : SINGLE
     Route: 065
     Dates: start: 20181002, end: 20181002

REACTIONS (2)
  - Product administered to patient of inappropriate age [Unknown]
  - No adverse event [Unknown]

NARRATIVE: CASE EVENT DATE: 20181002
